FAERS Safety Report 23627154 (Version 1)
Quarter: 2024Q1

REPORT INFORMATION
  Report Type: Spontaneous
  Country: CN (occurrence: CN)
  Receive Date: 20240313
  Receipt Date: 20240313
  Transmission Date: 20240410
  Serious: Yes (Hospitalization, Other)
  Sender: FDA-Public Use
  Company Number: CN-009507513-2403CHN003112

PATIENT
  Age: 51 Year
  Sex: Female
  Weight: 47.5 kg

DRUGS (4)
  1. KEYTRUDA [Suspect]
     Active Substance: PEMBROLIZUMAB
     Indication: Cervix carcinoma
     Dosage: 200 MG, ONCE
     Route: 041
     Dates: start: 20240202, end: 20240203
  2. PACLITAXEL [Suspect]
     Active Substance: PACLITAXEL
     Indication: Cervix carcinoma
     Dosage: 150 MG, QD, D8
     Route: 041
     Dates: start: 20240202, end: 20240203
  3. SODIUM CHLORIDE [Concomitant]
     Active Substance: SODIUM CHLORIDE
     Indication: Cervix carcinoma
     Dosage: 100 ML, ONCE. SHANDONG QIDU PHARMACEUTICAL CO., LTD
     Route: 041
     Dates: start: 20240202, end: 20240203
  4. SODIUM CHLORIDE [Concomitant]
     Active Substance: SODIUM CHLORIDE
     Indication: Cervix carcinoma
     Dosage: 40 ML, QD. SHIJIAZHUANG FOURTH MEDICINE CO., LTD.
     Route: 041
     Dates: start: 20240202, end: 20240203

REACTIONS (2)
  - Myelosuppression [Recovering/Resolving]
  - Product use issue [Unknown]

NARRATIVE: CASE EVENT DATE: 20240205
